FAERS Safety Report 4898538-6 (Version None)
Quarter: 2006Q1

REPORT INFORMATION
  Report Type: 
  Country: None (occurrence: None)
  Receive Date: 20060130
  Receipt Date: 20060120
  Transmission Date: 20060701
  Serious: Yes (Other)
  Sender: FDA-Public Use
  Company Number: 2006011016

PATIENT
  Sex: Female
  Weight: 69.4003 kg

DRUGS (6)
  1. GABAPENTIN [Suspect]
     Indication: NEURITIS
  2. METHADON AMIDONE HCL TAB [Suspect]
     Indication: ILL-DEFINED DISORDER
  3. OXYCODONE HCL [Suspect]
     Indication: ILL-DEFINED DISORDER
     Dates: end: 20050101
  4. EFFEXOR [Concomitant]
  5. TRAZODONE (TRAZODONE) [Concomitant]
  6. CELEXA [Concomitant]

REACTIONS (8)
  - ARTHRALGIA [None]
  - CARDIAC ARREST [None]
  - DRUG INEFFECTIVE [None]
  - FATIGUE [None]
  - FIBROMYALGIA [None]
  - PAIN [None]
  - RESPIRATORY DISORDER [None]
  - SLEEP APNOEA SYNDROME [None]
